FAERS Safety Report 4866943-X (Version None)
Quarter: 2005Q4

REPORT INFORMATION
  Report Type: 
  Country: None (occurrence: None)
  Receive Date: 20051222
  Receipt Date: 20051209
  Transmission Date: 20060501
  Serious: Yes (Other)
  Sender: FDA-Public Use
  Company Number: PHHO2004JP15278

PATIENT
  Age: 65 Year
  Sex: Male
  Weight: 59.013 kg

DRUGS (4)
  1. VISUDYNE [Suspect]
     Indication: MACULAR DEGENERATION
     Dates: start: 20041012, end: 20041012
  2. ADONA                   (AC-17) [Concomitant]
  3. KARIKUROMONE [Concomitant]
  4. DAONIL [Concomitant]

REACTIONS (3)
  - CHOROIDAL NEOVASCULARISATION [None]
  - DISEASE PROGRESSION [None]
  - RETINAL HAEMORRHAGE [None]
